FAERS Safety Report 10267352 (Version 1)
Quarter: 2014Q2

REPORT INFORMATION
  Report Type: Spontaneous
  Country: US (occurrence: None)
  Receive Date: 20140626
  Receipt Date: 20140626
  Transmission Date: 20141212
  Serious: Yes (Hospitalization)
  Sender: FDA-Public Use
  Company Number: None

PATIENT
  Age: 2 Year
  Sex: Male
  Weight: 12.8 kg

DRUGS (1)
  1. VINCRISTINE SULFATE 1.25 MG [Suspect]

REACTIONS (11)
  - Upper respiratory tract infection [None]
  - Diarrhoea [None]
  - Hypophagia [None]
  - Human metapneumovirus test positive [None]
  - White blood cell count decreased [None]
  - Neutropenia [None]
  - Pyrexia [None]
  - Vomiting [None]
  - Asthenia [None]
  - Urine output decreased [None]
  - Decreased appetite [None]
